FAERS Safety Report 9390963 (Version 1)
Quarter: 2013Q3

REPORT INFORMATION
  Report Type: Spontaneous
  Country: US (occurrence: None)
  Receive Date: 20130705
  Receipt Date: 20130705
  Transmission Date: 20140515
  Serious: Yes (Other)
  Sender: FDA-Public Use
  Company Number: None

PATIENT
  Age: 80 Year
  Sex: Male
  Weight: 92.08 kg

DRUGS (5)
  1. ATORVASTATIN [Suspect]
     Indication: BLOOD CHOLESTEROL INCREASED
     Dosage: STRENGTH:  20MG?QUANTITY:  1 PILL?FREQUENCY:  ONCE A DAY IN MORNING?HOW:  BY MOUTH?
     Route: 048
     Dates: start: 20120331, end: 20130624
  2. AMLODPPINE BESYLATE [Concomitant]
  3. DOXYCYCLINE HYCLATE [Concomitant]
  4. PRESERVATION EYE VITAMINS [Concomitant]
  5. IBUPROPEN [Concomitant]

REACTIONS (3)
  - Myalgia [None]
  - Headache [None]
  - Neck pain [None]
